FAERS Safety Report 20338096 (Version 1)
Quarter: 2022Q1

REPORT INFORMATION
  Report Type: Spontaneous
  Country: GB (occurrence: GB)
  Receive Date: 20220115
  Receipt Date: 20220115
  Transmission Date: 20220423
  Serious: Yes (Other)
  Sender: FDA-Public Use
  Company Number: GB-drreddys-LIT/UKI/22/0145701

PATIENT
  Age: 47 Year
  Sex: Female

DRUGS (3)
  1. COLESEVELAM [Suspect]
     Active Substance: COLESEVELAM
     Indication: Bile acid malabsorption
     Dosage: 10 DAY TRIAL
  2. COLESEVELAM [Suspect]
     Active Substance: COLESEVELAM
  3. Insulin pump therapy [Concomitant]
     Indication: Type 1 diabetes mellitus

REACTIONS (3)
  - Disease recurrence [Recovered/Resolved]
  - Hypoglycaemia [Recovered/Resolved]
  - Constipation [Unknown]
